FAERS Safety Report 24922953 (Version 3)
Quarter: 2025Q1

REPORT INFORMATION
  Report Type: Spontaneous
  Country: CA (occurrence: CA)
  Receive Date: 20250204
  Receipt Date: 20250221
  Transmission Date: 20250408
  Serious: Yes (Hospitalization)
  Sender: PFIZER
  Company Number: CA-PFIZER INC-202500016776

PATIENT
  Age: 56 Year
  Sex: Male

DRUGS (2)
  1. RUXIENCE [Suspect]
     Active Substance: RITUXIMAB-PVVR
     Indication: Granulomatosis with polyangiitis
     Dosage: 215 MG, WEEKLY X 4 DOSES (860MG TOTAL, IN 4 DIVIDED DOSES)
     Route: 042
     Dates: start: 20240502, end: 20240709
  2. RUXIENCE [Suspect]
     Active Substance: RITUXIMAB-PVVR
     Route: 042
     Dates: start: 20250129, end: 20250129

REACTIONS (9)
  - Feeling cold [Unknown]
  - Chills [Unknown]
  - Chest pain [Recovered/Resolved]
  - Nausea [Unknown]
  - Vomiting [Unknown]
  - Musculoskeletal stiffness [Unknown]
  - Inflammation [Unknown]
  - Off label use [Unknown]
  - Incorrect dose administered [Unknown]

NARRATIVE: CASE EVENT DATE: 20250129
